FAERS Safety Report 12524315 (Version 1)
Quarter: 2016Q3

REPORT INFORMATION
  Report Type: Spontaneous
  Country: FR (occurrence: FR)
  Receive Date: 20160704
  Receipt Date: 20160704
  Transmission Date: 20161109
  Serious: Yes (Death, Life-Threatening, Hospitalization, Other)
  Sender: FDA-Public Use
  Company Number: FR-ALEMBIC PHARMACUETICALS LIMITED-2016SCAL000523

PATIENT

DRUGS (2)
  1. ETHANOL [Suspect]
     Active Substance: ALCOHOL
     Indication: PRODUCT USED FOR UNKNOWN INDICATION
     Dosage: UNK
  2. LITHIUM CARBONATE. [Suspect]
     Active Substance: LITHIUM CARBONATE
     Indication: PRODUCT USED FOR UNKNOWN INDICATION
     Dosage: UNK

REACTIONS (29)
  - Circulatory collapse [Unknown]
  - Diabetes mellitus [Unknown]
  - Coma [Unknown]
  - Nervous system disorder [Unknown]
  - Renal failure [Unknown]
  - Sinoatrial block [Unknown]
  - Rhabdomyolysis [Unknown]
  - Hyperreflexia [Unknown]
  - Stupor [Unknown]
  - Muscle rigidity [Unknown]
  - Seizure [Unknown]
  - Cardiac arrest [Unknown]
  - Somnolence [Unknown]
  - Overdose [Unknown]
  - Cardiac failure [Unknown]
  - Acute kidney injury [Unknown]
  - Agitation [Unknown]
  - Tremor [Unknown]
  - Dysarthria [Unknown]
  - Urinary tract obstruction [Unknown]
  - Cardiogenic shock [Unknown]
  - Pneumonia aspiration [Unknown]
  - Acute respiratory distress syndrome [Unknown]
  - Myoclonus [Unknown]
  - Neurotoxicity [Unknown]
  - Hypertonia [Unknown]
  - Multiple organ dysfunction syndrome [Fatal]
  - Toxicity to various agents [Unknown]
  - Ataxia [Unknown]
